FAERS Safety Report 13486088 (Version 1)
Quarter: 2017Q2

REPORT INFORMATION
  Report Type: Spontaneous
  Country: US (occurrence: US)
  Receive Date: 20170426
  Receipt Date: 20170426
  Transmission Date: 20170830
  Serious: Yes (Life-Threatening, Disabling, Other)
  Sender: FDA-Public Use
  Company Number: None

PATIENT
  Age: 40 Year
  Sex: Female
  Weight: 53.1 kg

DRUGS (1)
  1. CLINDAMYCIN 300MG [Suspect]
     Active Substance: CLINDAMYCIN PHOSPHATE
     Indication: TOOTH INFECTION
     Dosage: ?          QUANTITY:1 CAPSULE(S);?
     Route: 048
     Dates: start: 20170425, end: 20170426

REACTIONS (9)
  - Gait disturbance [None]
  - Heart rate decreased [None]
  - Vision blurred [None]
  - Dry mouth [None]
  - Middle insomnia [None]
  - Palpitations [None]
  - Unevaluable event [None]
  - Dysstasia [None]
  - Asthenia [None]

NARRATIVE: CASE EVENT DATE: 20170425
